FAERS Safety Report 17792093 (Version 1)
Quarter: 2020Q2

REPORT INFORMATION
  Report Type: Spontaneous
  Country: GB (occurrence: GB)
  Receive Date: 20200515
  Receipt Date: 20200515
  Transmission Date: 20200714
  Serious: Yes (Death)
  Sender: FDA-Public Use
  Company Number: NVSC2020GB074439

PATIENT
  Age: 87 Year
  Sex: Male

DRUGS (5)
  1. FLUCLOXACILLIN [Interacting]
     Active Substance: FLUCLOXACILLIN
     Indication: CELLULITIS
     Dosage: 8 G, QD
     Route: 041
     Dates: start: 20190810, end: 20190812
  2. METHOTREXATE. [Suspect]
     Active Substance: METHOTREXATE
     Indication: LYMPHOMA
     Dosage: 3 G (STAT (IMMEDIATE) DOSE)
     Route: 041
     Dates: start: 20190807, end: 20190807
  3. CEFTRIAXONE. [Concomitant]
     Active Substance: CEFTRIAXONE
     Indication: CELLULITIS
     Dosage: 2 G, QD
     Route: 040
     Dates: start: 20190812, end: 20190816
  4. AUGMENTIN [Interacting]
     Active Substance: AMOXICILLIN\CLAVULANATE POTASSIUM
     Indication: CELLULITIS
     Dosage: 3.6 G, QD
     Route: 041
     Dates: start: 20190808, end: 20190812
  5. CEFTAZIDIME. [Concomitant]
     Active Substance: CEFTAZIDIME
     Indication: CELLULITIS
     Dosage: 6 G, QD
     Route: 040
     Dates: start: 20190816, end: 20190819

REACTIONS (3)
  - Acute kidney injury [Fatal]
  - Drug interaction [Unknown]
  - Glomerular filtration rate decreased [Unknown]

NARRATIVE: CASE EVENT DATE: 201908
